FAERS Safety Report 5257742-8 (Version None)
Quarter: 2007Q1

REPORT INFORMATION
  Report Type: 
  Country: None (occurrence: None)
  Receive Date: 20070307
  Receipt Date: 20070301
  Transmission Date: 20070707
  Serious: Yes (Other)
  Sender: FDA-Public Use
  Company Number: US-JNJFOC-20070105179

PATIENT
  Sex: Male
  Weight: 75.75 kg

DRUGS (8)
  1. VIADUR [Suspect]
     Indication: PROSTATE CANCER
     Route: 058
  2. LANOXIN [Concomitant]
  3. OMEPRAZOLE [Concomitant]
  4. HYDRAZALINE [Concomitant]
  5. ISOSORBIDE [Concomitant]
  6. CLOPIDROGEL [Concomitant]
  7. ENABLEX [Concomitant]
  8. DARVOCET-N 100 [Concomitant]

REACTIONS (1)
  - DEEP VEIN THROMBOSIS [None]
